FAERS Safety Report 13425396 (Version 3)
Quarter: 2017Q3

REPORT INFORMATION
  Report Type: Spontaneous
  Country: US (occurrence: US)
  Receive Date: 20170411
  Receipt Date: 20170830
  Transmission Date: 20171127
  Serious: No
  Sender: FDA-Public Use
  Company Number: US-AMGEN-USASP2017051661

PATIENT
  Age: 56 Year
  Sex: Male

DRUGS (2)
  1. ENBREL [Suspect]
     Active Substance: ETANERCEPT
     Dosage: 50 MG, ONCE WEEKLY
     Route: 065
     Dates: start: 201701, end: 201701
  2. ENBREL [Suspect]
     Active Substance: ETANERCEPT
     Indication: PSORIATIC ARTHROPATHY
     Dosage: 25 MG, TWICE WEEKLY
     Route: 065
     Dates: start: 2012

REACTIONS (11)
  - Tooth disorder [Unknown]
  - Injection site bruising [Unknown]
  - Hyperaesthesia [Unknown]
  - Injection site haemorrhage [Unknown]
  - Gingival disorder [Unknown]
  - Drug effect incomplete [Unknown]
  - Gingival bleeding [Unknown]
  - Adverse event [Unknown]
  - Pyrexia [Unknown]
  - Headache [Unknown]
  - Wrong technique in product usage process [Unknown]

NARRATIVE: CASE EVENT DATE: 2017
